FAERS Safety Report 7673962-7 (Version None)
Quarter: 2011Q3

REPORT INFORMATION
  Report Type: 
  Country: None (occurrence: None)
  Receive Date: 20110808
  Receipt Date: 20110727
  Transmission Date: 20111222
  Serious: Yes (Other)
  Sender: FDA-Public Use
  Company Number: TRP_07872_2011

PATIENT
  Sex: Male

DRUGS (2)
  1. RIBAVIRIN [Suspect]
     Indication: HEPATITIS C
     Dosage: (400 MG BID ORAL)
     Route: 048
     Dates: start: 20101221, end: 20110505
  2. INFERGEN [Suspect]
     Indication: HEPATITIS C
     Dosage: (15 UG QD SUBCUTANEOUS)
     Route: 058
     Dates: start: 20101221, end: 20110505

REACTIONS (3)
  - CONDITION AGGRAVATED [None]
  - VITREOUS FLOATERS [None]
  - RETINAL TOXICITY [None]
